FAERS Safety Report 7971884-5 (Version None)
Quarter: 2011Q4

REPORT INFORMATION
  Report Type: 
  Country: None (occurrence: None)
  Receive Date: 20111212
  Receipt Date: 20111206
  Transmission Date: 20120403
  Serious: Yes (Other)
  Sender: FDA-Public Use
  Company Number: US-BAYER-200829294NA

PATIENT
  Sex: Male
  Weight: 87.528 kg

DRUGS (26)
  1. OPTIMARK [Suspect]
     Indication: PRODUCT USED FOR UNKNOWN INDICATION
  2. MYCOPHENOLATE MOFETIL (CELLCEPT) [Concomitant]
  3. IRON SULFATETHIAMIN COMPOUND TAB [Concomitant]
  4. AMLODIPINE BESYLATE [Concomitant]
  5. PROTONIX [Concomitant]
  6. COLCHICINE [Concomitant]
  7. COZAAR [Concomitant]
  8. FUROSEMIDE [Concomitant]
  9. ALLOPURINOL [Concomitant]
  10. NORVASC [Concomitant]
  11. EPOGEN [Concomitant]
  12. GLIPIZIDE [Concomitant]
  13. OMNISCAN [Suspect]
     Indication: PRODUCT USED FOR UNKNOWN INDICATION
  14. MULTIHANCE [Suspect]
     Indication: PRODUCT USED FOR UNKNOWN INDICATION
  15. PROHANCE [Suspect]
     Indication: PRODUCT USED FOR UNKNOWN INDICATION
  16. TOPROL-XL [Concomitant]
  17. LIPITOR [Concomitant]
  18. WARFARIN SODIUM [Concomitant]
  19. PREDNISONE [Concomitant]
  20. SYNTHROID [Concomitant]
  21. MAGNEVIST [Suspect]
     Indication: NUCLEAR MAGNETIC RESONANCE IMAGING
     Dosage: UNK UNK, ONCE
     Dates: start: 20020328, end: 20020328
  22. PROGRAF [Concomitant]
  23. ROCALTROL [Concomitant]
  24. LANTUS [Concomitant]
  25. FISH OIL [Concomitant]
  26. JANUVIA [Concomitant]

REACTIONS (18)
  - NEPHROGENIC SYSTEMIC FIBROSIS [None]
  - FATIGUE [None]
  - JOINT SWELLING [None]
  - SKIN INDURATION [None]
  - PRURITUS [None]
  - PAIN [None]
  - INJURY [None]
  - BACK PAIN [None]
  - EMOTIONAL DISTRESS [None]
  - MOBILITY DECREASED [None]
  - RASH [None]
  - ARTHRALGIA [None]
  - ANXIETY [None]
  - GENERAL PHYSICAL HEALTH DETERIORATION [None]
  - JOINT INSTABILITY [None]
  - MUSCULAR WEAKNESS [None]
  - SKIN ULCER [None]
  - DISCOMFORT [None]
